FAERS Safety Report 5283469-2 (Version None)
Quarter: 2007Q2

REPORT INFORMATION
  Report Type: 
  Country: None (occurrence: None)
  Receive Date: 20070402
  Receipt Date: 20070327
  Transmission Date: 20071010
  Serious: Yes (Hospitalization, Other)
  Sender: FDA-Public Use
  Company Number: NL-MERCK-0703NLD00025

PATIENT
  Age: 52 Year
  Sex: Female

DRUGS (6)
  1. VYTORIN [Suspect]
     Indication: HYPERCHOLESTEROLAEMIA
     Route: 048
  2. ZOCOR [Concomitant]
     Indication: HYPERCHOLESTEROLAEMIA
     Route: 048
     Dates: start: 20040204, end: 20070101
  3. FUROSEMIDE [Concomitant]
     Route: 048
     Dates: start: 19980101
  4. ATENOLOL [Concomitant]
     Route: 048
     Dates: start: 20060101
  5. OMEPRAZOLE [Concomitant]
     Route: 048
     Dates: start: 20000101
  6. SLOW-K [Concomitant]
     Route: 048
     Dates: start: 20000101

REACTIONS (2)
  - FLUSHING [None]
  - HEPATIC FUNCTION ABNORMAL [None]
